FAERS Safety Report 11290609 (Version 1)
Quarter: 2015Q3

REPORT INFORMATION
  Report Type: Spontaneous
  Country: US (occurrence: US)
  Receive Date: 20150722
  Receipt Date: 20150722
  Transmission Date: 20151125
  Serious: No
  Sender: FDA-Public Use
  Company Number: US-UNITED THERAPEUTICS-UNT-2015-004926

PATIENT
  Age: 37 Year
  Sex: Male
  Weight: 154.2 kg

DRUGS (3)
  1. REMODULIN [Suspect]
     Active Substance: TREPROSTINIL
     Indication: PULMONARY ARTERIAL HYPERTENSION
     Dosage: 0.007 ?G/KG/MIN, CONTINUING
     Route: 058
     Dates: start: 20150424
  2. REMODULIN [Suspect]
     Active Substance: TREPROSTINIL
     Dosage: 0.014 ?G/KG/MIN, CONTINUING
     Route: 041
     Dates: start: 20150515
  3. REMODULIN [Suspect]
     Active Substance: TREPROSTINIL
     Indication: PULMONARY HYPERTENSION
     Dosage: UNK
     Dates: start: 20150427

REACTIONS (10)
  - Infusion site inflammation [Unknown]
  - Infusion site erythema [Unknown]
  - Dermatitis contact [Unknown]
  - Headache [Unknown]
  - Infusion site rash [Unknown]
  - Infusion site oedema [Unknown]
  - Pulmonary arterial hypertension [Not Recovered/Not Resolved]
  - Groin pain [Unknown]
  - Device dislocation [Unknown]
  - Infusion site pain [Unknown]

NARRATIVE: CASE EVENT DATE: 20150424
